FAERS Safety Report 24129114 (Version 1)
Quarter: 2024Q3

REPORT INFORMATION
  Report Type: Other
  Country: TR (occurrence: TR)
  Receive Date: 20240723
  Receipt Date: 20240723
  Transmission Date: 20241016
  Serious: Yes (Hospitalization, Congenital Anomaly, Other)
  Sender: DEXCEL
  Company Number: TR-DEXPHARM-2024-2410

PATIENT

DRUGS (1)
  1. LEVETIRACETAM [Suspect]
     Active Substance: LEVETIRACETAM

REACTIONS (2)
  - Developmental delay [Recovered/Resolved]
  - Foetal exposure during pregnancy [Recovered/Resolved]
